FAERS Safety Report 21344398 (Version 1)
Quarter: 2022Q3

REPORT INFORMATION
  Report Type: Other
  Country: US (occurrence: US)
  Receive Date: 20220916
  Receipt Date: 20220916
  Transmission Date: 20221026
  Serious: No
  Sender: FDA-Public Use
  Company Number: US-LEADIANT GMBH-2022STPI000189

PATIENT
  Sex: Female

DRUGS (1)
  1. MATULANE [Suspect]
     Active Substance: PROCARBAZINE HYDROCHLORIDE
     Indication: Hodgkin^s disease
     Dosage: 50 MILLIGRAM, 3 CAPSULES (150 MG TOTAL) DAILY FOR 7 DAYS THEN 14 DAYS OFF
     Route: 048
     Dates: start: 20220318

REACTIONS (1)
  - Neuropathy peripheral [Unknown]
